FAERS Safety Report 5747487-X (Version None)
Quarter: 2008Q2

REPORT INFORMATION
  Report Type: 
  Country: None (occurrence: None)
  Receive Date: 20080523
  Receipt Date: 20080521
  Transmission Date: 20081010
  Serious: Yes (Death)
  Sender: FDA-Public Use
  Company Number: KR-JNJFOC-20080503561

PATIENT
  Age: 37 Year
  Sex: Female

DRUGS (25)
  1. DURAGESIC-100 [Suspect]
     Route: 062
  2. DURAGESIC-100 [Suspect]
     Route: 062
  3. DURAGESIC-100 [Suspect]
     Route: 062
  4. DURAGESIC-100 [Suspect]
     Route: 062
  5. DURAGESIC-100 [Suspect]
     Route: 062
  6. DURAGESIC-100 [Suspect]
     Route: 062
  7. DURAGESIC-100 [Suspect]
     Route: 062
  8. DURAGESIC-100 [Suspect]
     Route: 062
  9. DURAGESIC-100 [Suspect]
     Indication: CANCER PAIN
     Route: 062
  10. MORPHINE SUL INJ [Concomitant]
     Route: 042
  11. MORPHINE SUL INJ [Concomitant]
     Route: 042
  12. MORPHINE SUL INJ [Concomitant]
     Route: 042
  13. MORPHINE SUL INJ [Concomitant]
     Route: 042
  14. MORPHINE SUL INJ [Concomitant]
     Route: 042
  15. MORPHINE SUL INJ [Concomitant]
     Route: 042
  16. MORPHINE SUL INJ [Concomitant]
     Route: 042
  17. MORPHINE SUL INJ [Concomitant]
     Route: 042
  18. MORPHINE SUL INJ [Concomitant]
     Indication: CANCER PAIN
     Route: 042
  19. MORPHINE [Concomitant]
     Route: 042
  20. MORPHINE [Concomitant]
     Route: 042
  21. MORPHINE [Concomitant]
     Route: 042
  22. MORPHINE [Concomitant]
     Route: 042
  23. MORPHINE [Concomitant]
     Route: 042
  24. MORPHINE [Concomitant]
     Route: 042
  25. MORPHINE [Concomitant]
     Indication: CANCER PAIN
     Route: 042

REACTIONS (2)
  - MALIGNANT NEOPLASM PROGRESSION [None]
  - OVERDOSE [None]
